FAERS Safety Report 9862642 (Version 1)
Quarter: 2014Q1

REPORT INFORMATION
  Report Type: Spontaneous
  Country: AU (occurrence: None)
  Receive Date: 20140130
  Receipt Date: 20140130
  Transmission Date: 20141002
  Serious: Yes (Other)
  Sender: FDA-Public Use
  Company Number: BD-2014-0002

PATIENT
  Age: 52 Year
  Sex: Male

DRUGS (14)
  1. METOCLOPRAMIDE [Suspect]
     Indication: PRODUCT USED FOR UNKNOWN INDICATION
  2. DULOXETINE (DULOXETINE) (DULOXETINE) [Suspect]
     Indication: PRODUCT USED FOR UNKNOWN INDICATION
  3. ARIPIPRAZOLE (ARIPIPRAZOLE) [Concomitant]
  4. CHLORPHENIRAMINE (CHLORPHENAMINE) [Concomitant]
  5. CODEINE (CODEINE) [Concomitant]
  6. DIAZEPAM [Concomitant]
  7. LAMOTRIGINE (LAMOTRIGINE) [Concomitant]
  8. MORPHINE (MORPHINE) [Concomitant]
  9. METHAMPHETAMINE (METAMFETAMINE HYDROCHLORIDE) [Concomitant]
  10. NITRRAZEPAM (NITRAZEPAM) [Concomitant]
  11. PARACETAMOL (PARACETAMOL) [Concomitant]
  12. PHOLCODINE (PHOLCODINE) [Concomitant]
  13. PROPRANOLOL (PROPRANOLOL) [Concomitant]
  14. PROPOXYPHENE (DEXTROPROPROXYPHENE) [Concomitant]

REACTIONS (3)
  - Toxicity to various agents [None]
  - Cardiomegaly [None]
  - Arteriosclerosis coronary artery [None]
